FAERS Safety Report 25368538 (Version 1)
Quarter: 2025Q2

REPORT INFORMATION
  Report Type: Spontaneous
  Country: US (occurrence: None)
  Receive Date: 20250527
  Receipt Date: 20250527
  Transmission Date: 20250717
  Serious: Yes (Disabling)
  Sender: FDA-CTU
  Company Number: None

PATIENT
  Sex: Male

DRUGS (4)
  1. INSULIN GLARGINE-YFGN [Suspect]
     Active Substance: INSULIN GLARGINE-YFGN
     Indication: Blood cholesterol increased
  2. INSULIN GLARGINE-YFGN [Suspect]
     Active Substance: INSULIN GLARGINE-YFGN
     Indication: Blood cholesterol increased
  3. EMPAGLIFLOZIN [Suspect]
     Active Substance: EMPAGLIFLOZIN
  4. ROSUVASTATIN [Suspect]
     Active Substance: ROSUVASTATIN

REACTIONS (10)
  - Pain in extremity [None]
  - Arthralgia [None]
  - Gait disturbance [None]
  - Sitting disability [None]
  - Headache [None]
  - Dizziness [None]
  - Vertigo [None]
  - Disorientation [None]
  - Balance disorder [None]
  - Nausea [None]

NARRATIVE: CASE EVENT DATE: 20250527
